FAERS Safety Report 10602177 (Version 1)
Quarter: 2014Q4

REPORT INFORMATION
  Report Type: Spontaneous
  Country: JP (occurrence: None)
  Receive Date: 20141120
  Receipt Date: 20141120
  Transmission Date: 20150529
  Serious: Yes (Hospitalization, Other)
  Sender: FDA-Public Use
  Company Number: JP2014JPN004666

PATIENT
  Age: 46 Year
  Sex: Male

DRUGS (6)
  1. ACYCLOVIR. [Concomitant]
     Active Substance: ACYCLOVIR
  2. REBAMIPIDE [Concomitant]
     Active Substance: REBAMIPIDE
  3. LOXOPROFEN [Concomitant]
     Active Substance: LOXOPROFEN
  4. TIVICAY [Suspect]
     Active Substance: DOLUTEGRAVIR SODIUM
     Indication: HIV INFECTION
     Route: 048
     Dates: start: 20140912, end: 20141001
  5. TRUVADA (EMTRICITABINE + TENOFOVIR DISOPROXIL FUMARATE) [Concomitant]
  6. BAKTAR (SULFAMETHXAZOLE + TRIMETHOPRIM) [Concomitant]

REACTIONS (5)
  - Abnormal behaviour [None]
  - Disorientation [None]
  - AIDS dementia complex [None]
  - Malaise [None]
  - Hallucination, visual [None]

NARRATIVE: CASE EVENT DATE: 20140918
